FAERS Safety Report 13179595 (Version 1)
Quarter: 2017Q1

REPORT INFORMATION
  Report Type: Spontaneous
  Country: FR (occurrence: FR)
  Receive Date: 20170202
  Receipt Date: 20170202
  Transmission Date: 20170428
  Serious: Yes (Death, Other)
  Sender: FDA-Public Use
  Company Number: FR-ELI_LILLY_AND_COMPANY-FR201701010039

PATIENT
  Age: 75 Year
  Sex: Male

DRUGS (13)
  1. KARDEGIC [Suspect]
     Active Substance: ASPIRIN LYSINE
     Indication: PRODUCT USED FOR UNKNOWN INDICATION
     Dosage: 1 DF, QD
     Route: 048
     Dates: end: 20160220
  2. RAMIPRIL. [Suspect]
     Active Substance: RAMIPRIL
     Indication: HYPERTENSION
     Dosage: 5 MG, QD
     Route: 048
     Dates: end: 20160219
  3. TAHOR [Concomitant]
     Active Substance: ATORVASTATIN CALCIUM
  4. SPECIAFOLDINE [Concomitant]
     Active Substance: FOLIC ACID
  5. CARBOPLATIN HOSPIRA [Suspect]
     Active Substance: CARBOPLATIN
     Indication: LUNG ADENOCARCINOMA STAGE IV
     Dosage: UNK, UNKNOWN
     Route: 042
     Dates: start: 20160209, end: 20160209
  6. ALIMTA [Suspect]
     Active Substance: PEMETREXED DISODIUM
     Indication: LUNG ADENOCARCINOMA STAGE IV
     Dosage: UNK, CYCLICAL
     Route: 042
     Dates: start: 20160209, end: 20160209
  7. INEXIUM                            /01479302/ [Concomitant]
     Active Substance: ESOMEPRAZOLE MAGNESIUM
  8. SPIRIVA [Concomitant]
     Active Substance: TIOTROPIUM BROMIDE MONOHYDRATE
  9. ZYVOXID [Suspect]
     Active Substance: LINEZOLID
     Indication: LUNG DISORDER
     Dosage: 2 DF, QD
     Route: 048
     Dates: start: 20160209, end: 20160219
  10. METFORMINE [Concomitant]
     Active Substance: METFORMIN HYDROCHLORIDE
  11. ONBREZ BREEZHALER [Concomitant]
     Active Substance: INDACATEROL
  12. LODOZ [Suspect]
     Active Substance: BISOPROLOL FUMARATE\HYDROCHLOROTHIAZIDE
     Indication: HYPERTENSION
     Dosage: UNK, UNKNOWN
     Route: 048
     Dates: end: 20160219
  13. ALLOPURINOL. [Concomitant]
     Active Substance: ALLOPURINOL

REACTIONS (20)
  - Acute kidney injury [Fatal]
  - Epistaxis [Fatal]
  - Hypophagia [Unknown]
  - General physical health deterioration [Fatal]
  - Melaena [Fatal]
  - Candida infection [Unknown]
  - Diarrhoea [Fatal]
  - Hypotension [Fatal]
  - Mouth haemorrhage [Fatal]
  - Renal tubular necrosis [Unknown]
  - Haemophilus infection [Unknown]
  - Pyrexia [Unknown]
  - Haematoma [Fatal]
  - Dysphagia [Unknown]
  - Dehydration [Unknown]
  - Angina pectoris [Unknown]
  - Off label use [Unknown]
  - Bone marrow failure [Fatal]
  - Mucosal inflammation [Fatal]
  - Haematuria [Fatal]

NARRATIVE: CASE EVENT DATE: 20160209
